FAERS Safety Report 23929450 (Version 3)
Quarter: 2025Q1

REPORT INFORMATION
  Report Type: Spontaneous
  Country: RO (occurrence: RO)
  Receive Date: 20240601
  Receipt Date: 20250210
  Transmission Date: 20250409
  Serious: Yes (Life-Threatening, Other)
  Sender: AUROBINDO
  Company Number: RO-FreseniusKabi-FK202407483

PATIENT
  Age: 53 Year
  Sex: Female

DRUGS (16)
  1. IRINOTECAN [Suspect]
     Active Substance: IRINOTECAN
     Indication: Oesophageal squamous cell carcinoma metastatic
     Route: 042
     Dates: start: 202305
  2. IRINOTECAN [Suspect]
     Active Substance: IRINOTECAN
     Indication: Oesophageal squamous cell carcinoma
     Route: 065
     Dates: start: 2023, end: 202310
  3. IRINOTECAN [Suspect]
     Active Substance: IRINOTECAN
     Indication: Oesophageal squamous cell carcinoma stage II
     Route: 065
     Dates: start: 2023, end: 20231025
  4. IRINOTECAN [Suspect]
     Active Substance: IRINOTECAN
     Indication: Metastases to lymph nodes
  5. IRINOTECAN [Suspect]
     Active Substance: IRINOTECAN
     Indication: Metastases to lung
  6. IRINOTECAN [Suspect]
     Active Substance: IRINOTECAN
     Indication: Malignant neoplasm progression
  7. LEUCOVORIN CALCIUM [Concomitant]
     Active Substance: LEUCOVORIN CALCIUM
     Indication: Oesophageal squamous cell carcinoma metastatic
     Route: 065
     Dates: start: 2023
  8. LEUCOVORIN CALCIUM [Concomitant]
     Active Substance: LEUCOVORIN CALCIUM
     Indication: Oesophageal squamous cell carcinoma stage II
  9. LEUCOVORIN CALCIUM [Concomitant]
     Active Substance: LEUCOVORIN CALCIUM
     Indication: Metastases to lymph nodes
  10. LEUCOVORIN CALCIUM [Concomitant]
     Active Substance: LEUCOVORIN CALCIUM
     Indication: Metastases to lung
  11. LEUCOVORIN CALCIUM [Concomitant]
     Active Substance: LEUCOVORIN CALCIUM
     Indication: Malignant neoplasm progression
  12. FLUOROURACIL [Concomitant]
     Active Substance: FLUOROURACIL
     Indication: Oesophageal squamous cell carcinoma metastatic
     Route: 065
     Dates: start: 2023
  13. FLUOROURACIL [Concomitant]
     Active Substance: FLUOROURACIL
     Indication: Oesophageal squamous cell carcinoma stage II
  14. FLUOROURACIL [Concomitant]
     Active Substance: FLUOROURACIL
     Indication: Metastases to lymph nodes
  15. FLUOROURACIL [Concomitant]
     Active Substance: FLUOROURACIL
     Indication: Metastases to lung
  16. FLUOROURACIL [Concomitant]
     Active Substance: FLUOROURACIL
     Indication: Malignant neoplasm progression

REACTIONS (10)
  - Anaphylactic reaction [Recovered/Resolved]
  - Type I hypersensitivity [Unknown]
  - Angioedema [Recovered/Resolved]
  - Tachycardia [Recovered/Resolved]
  - Abdominal pain [Recovered/Resolved]
  - Vision blurred [Recovered/Resolved]
  - Dysphagia [Recovered/Resolved]
  - Rhinorrhoea [Recovered/Resolved]
  - Hypotension [Recovered/Resolved]
  - Off label use [Unknown]

NARRATIVE: CASE EVENT DATE: 20231025
